FAERS Safety Report 8252974-9 (Version None)
Quarter: 2012Q2

REPORT INFORMATION
  Report Type: 
  Country: None (occurrence: None)
  Receive Date: 20120402
  Receipt Date: 20120323
  Transmission Date: 20120825
  Serious: Yes (Hospitalization, Disabling, Other)
  Sender: FDA-Public Use
  Company Number: US-MERCK-1108USA02431

PATIENT
  Age: 80 Year
  Sex: Female
  Weight: 55 kg

DRUGS (2)
  1. ALENDRONATE SODIUM [Suspect]
     Route: 065
     Dates: start: 20080101
  2. FOSAMAX [Suspect]
     Indication: OSTEOPOROSIS
     Route: 048
     Dates: start: 20030930, end: 20091001

REACTIONS (41)
  - ORAL CAVITY FISTULA [None]
  - DEPRESSION [None]
  - HYPERLIPIDAEMIA [None]
  - BRUXISM [None]
  - RESTLESS LEGS SYNDROME [None]
  - PERIPHERAL VASCULAR DISORDER [None]
  - TENDON RUPTURE [None]
  - CEREBROVASCULAR ACCIDENT [None]
  - OSTEOMYELITIS [None]
  - HAEMATOMA [None]
  - PARAESTHESIA [None]
  - URINARY INCONTINENCE [None]
  - OSTEOSCLEROSIS [None]
  - DEMENTIA [None]
  - ARTHRALGIA [None]
  - ORAL TORUS [None]
  - EXOSTOSIS [None]
  - OSTEOARTHRITIS [None]
  - HYPERTENSION [None]
  - RHEUMATOID ARTHRITIS [None]
  - RADIUS FRACTURE [None]
  - ARTHROPATHY [None]
  - GASTROOESOPHAGEAL REFLUX DISEASE [None]
  - COUGH [None]
  - COGNITIVE DISORDER [None]
  - ROTATOR CUFF SYNDROME [None]
  - ANAEMIA [None]
  - LACERATION [None]
  - ARTHRITIS [None]
  - BALANCE DISORDER [None]
  - ABSCESS JAW [None]
  - ABSCESS ORAL [None]
  - CHRONIC OBSTRUCTIVE PULMONARY DISEASE [None]
  - FALL [None]
  - TOOTH DISORDER [None]
  - OSTEONECROSIS OF JAW [None]
  - CONVULSION [None]
  - CELLULITIS [None]
  - ANXIETY [None]
  - EXPOSED BONE IN JAW [None]
  - EMPHYSEMA [None]
